FAERS Safety Report 23274593 (Version 4)
Quarter: 2025Q4

REPORT INFORMATION
  Report Type: Report from Study
  Country: US (occurrence: None)
  Receive Date: 20231208
  Receipt Date: 20251128
  Transmission Date: 20260117
  Serious: Yes (Hospitalization, Other)
  Sender: UCB
  Company Number: US-UCBSA-2023057751

PATIENT
  Age: 45 Year
  Weight: 154 kg

DRUGS (2)
  1. LACOSAMIDE [Suspect]
     Active Substance: LACOSAMIDE
     Indication: Seizure
     Dosage: 100 MILLIGRAM, 2X/DAY (BID)
  2. LACOSAMIDE [Suspect]
     Active Substance: LACOSAMIDE
     Indication: Epilepsy
     Dosage: 100MG-2 TABS AM AND 3 TABS PM

REACTIONS (8)
  - Thyroid cancer [Not Recovered/Not Resolved]
  - Seizure [Recovered/Resolved]
  - Brain operation [Unknown]
  - Thyroidectomy [Unknown]
  - Therapy interrupted [Unknown]
  - Product availability issue [Unknown]
  - Product use issue [Unknown]
  - Overdose [Unknown]
